FAERS Safety Report 15645481 (Version 1)
Quarter: 2018Q4

REPORT INFORMATION
  Report Type: Spontaneous
  Country: CN (occurrence: CN)
  Receive Date: 20181121
  Receipt Date: 20181121
  Transmission Date: 20190205
  Serious: Yes (Hospitalization, Other)
  Sender: FDA-Public Use
  Company Number: CN-GILEAD-2018-0375325

PATIENT
  Age: 48 Year
  Sex: Male

DRUGS (2)
  1. HEPSERA [Suspect]
     Active Substance: ADEFOVIR DIPIVOXIL
     Indication: CHRONIC HEPATITIS B
     Dosage: 10 MG, QD
     Route: 065
  2. ENTECAVIR. [Concomitant]
     Active Substance: ENTECAVIR

REACTIONS (11)
  - Osteomalacia [Recovering/Resolving]
  - Blood potassium decreased [Recovered/Resolved]
  - Hypophosphataemia [Recovering/Resolving]
  - Pain [Recovering/Resolving]
  - Bone lesion [Unknown]
  - Fanconi syndrome [Recovering/Resolving]
  - Gait disturbance [Recovering/Resolving]
  - Osteoporosis [Recovering/Resolving]
  - Blood calcium decreased [Recovered/Resolved]
  - Multiple fractures [Recovering/Resolving]
  - Kyphoscoliosis [Recovering/Resolving]
